FAERS Safety Report 8965426 (Version 1)
Quarter: 2012Q4

REPORT INFORMATION
  Report Type: 
  Country: CN (occurrence: CN)
  Receive Date: 20121213
  Receipt Date: 20121213
  Transmission Date: 20130627
  Serious: Yes (Hospitalization, Other)
  Sender: FDA-Public Use
  Company Number: PHHY2012CN107384

PATIENT
  Age: 65 Year
  Sex: Female
  Weight: 48 kg

DRUGS (3)
  1. MIACALCIC [Suspect]
     Indication: OSTEOPOROSIS
     Dosage: 1 DF, 50 IU
     Route: 030
     Dates: start: 20090526
  2. MIACALCIC [Suspect]
     Dosage: 1 DF, UNK
     Route: 030
     Dates: start: 20090527, end: 20090527
  3. MIACALCIC [Suspect]
     Dosage: 1 DF, UNK
     Route: 030
     Dates: start: 20090628

REACTIONS (3)
  - Gastrointestinal haemorrhage [Recovered/Resolved]
  - Vomiting [Recovered/Resolved]
  - Erythema [Recovered/Resolved]
